FAERS Safety Report 6805346-5 (Version None)
Quarter: 2010Q2

REPORT INFORMATION
  Report Type: 
  Country: None (occurrence: None)
  Receive Date: 20100628
  Receipt Date: 20071022
  Transmission Date: 20101027
  Serious: No
  Sender: FDA-Public Use
  Company Number: US-PFIZER INC-2007086510

PATIENT
  Sex: Female
  Weight: 52.2 kg

DRUGS (7)
  1. REVATIO [Suspect]
     Indication: CARDIAC DISORDER
     Route: 048
     Dates: start: 20071001, end: 20071008
  2. LISINOPRIL [Concomitant]
  3. ATENOLOL [Concomitant]
  4. CARDIZEM [Concomitant]
  5. LASIX [Concomitant]
  6. POTASSIUM [Concomitant]
  7. OXYGEN [Concomitant]

REACTIONS (8)
  - BURN OESOPHAGEAL [None]
  - DIZZINESS [None]
  - DYSPEPSIA [None]
  - DYSPNOEA [None]
  - FLUSHING [None]
  - HEADACHE [None]
  - PYREXIA [None]
  - VISION BLURRED [None]
